FAERS Safety Report 23145772 (Version 1)
Quarter: 2023Q4

REPORT INFORMATION
  Report Type: Spontaneous
  Country: US (occurrence: US)
  Receive Date: 20231103
  Receipt Date: 20231103
  Transmission Date: 20240110
  Serious: No
  Sender: FDA-Public Use
  Company Number: US-SANDOZ-SDZ2023US050210

PATIENT
  Sex: Female

DRUGS (1)
  1. AZOPT [Suspect]
     Active Substance: BRINZOLAMIDE
     Indication: Glaucoma
     Route: 065

REACTIONS (4)
  - Nasal pruritus [Unknown]
  - Abnormal sensation in eye [Unknown]
  - Eye pruritus [Unknown]
  - Product availability issue [Unknown]
